FAERS Safety Report 7379865-X (Version None)
Quarter: 2011Q1

REPORT INFORMATION
  Report Type: 
  Country: None (occurrence: None)
  Receive Date: 20110329
  Receipt Date: 20110321
  Transmission Date: 20110831
  Serious: Yes (Hospitalization, Other)
  Sender: FDA-Public Use
  Company Number: US-NOVOPROD-321897

PATIENT
  Age: 49 Year
  Sex: Female
  Weight: 106.58 kg

DRUGS (7)
  1. NATURAL VITAMIN D [Concomitant]
     Indication: VITAMIN SUPPLEMENTATION
  2. VICTOZA [Suspect]
     Indication: TYPE 2 DIABETES MELLITUS
     Dosage: 1.8 MG, QD
     Route: 058
     Dates: start: 20100101
  3. PREDNISONE [Concomitant]
     Indication: OEDEMA PERIPHERAL
  4. ASPIRIN [Concomitant]
     Indication: PRODUCT USED FOR UNKNOWN INDICATION
     Dosage: 81 MG, QD
     Route: 048
  5. DICLOFENAC [Concomitant]
     Indication: ARTHRITIS
  6. METFORMIN HCL [Concomitant]
     Indication: TYPE 2 DIABETES MELLITUS
     Dosage: 1000 MG, BID
     Route: 048
  7. PREDNISONE [Concomitant]
     Indication: PAIN

REACTIONS (8)
  - DYSPNOEA [None]
  - FEELING HOT [None]
  - OEDEMA PERIPHERAL [None]
  - WOUND INFECTION STAPHYLOCOCCAL [None]
  - PAIN IN EXTREMITY [None]
  - CHEST DISCOMFORT [None]
  - THROMBOSIS [None]
  - CHEST PAIN [None]
